FAERS Safety Report 7909816-8 (Version None)
Quarter: 2011Q4

REPORT INFORMATION
  Report Type: 
  Country: None (occurrence: None)
  Receive Date: 20111111
  Receipt Date: 20111109
  Transmission Date: 20120403
  Serious: Yes (Hospitalization)
  Sender: FDA-Public Use
  Company Number: US-MERCK-1110USA03002

PATIENT
  Age: 59 Year
  Sex: Male
  Weight: 74 kg

DRUGS (2)
  1. COZAAR [Suspect]
     Indication: HYPERTENSION
     Route: 048
     Dates: start: 19720101, end: 20070101
  2. VITAMINS (UNSPECIFIED) [Concomitant]
     Route: 065

REACTIONS (1)
  - CARDIAC DISORDER [None]
